FAERS Safety Report 10592997 (Version 11)
Quarter: 2015Q2

REPORT INFORMATION
  Report Type: Spontaneous
  Country: IL (occurrence: IL)
  Receive Date: 20141119
  Receipt Date: 20150604
  Transmission Date: 20150821
  Serious: Yes (Hospitalization, Other)
  Sender: FDA-Public Use
  Company Number: IL-PFIZER INC-2014100020

PATIENT
  Age: 75 Year
  Sex: Male

DRUGS (7)
  1. SUTENT [Suspect]
     Active Substance: SUNITINIB MALATE
     Indication: RENAL CELL CARCINOMA
     Dosage: 50 MG, 1X/DAY
     Route: 048
     Dates: start: 20140311
  2. SUTENT [Suspect]
     Active Substance: SUNITINIB MALATE
     Dosage: 50 MG, 1X/DAY
     Route: 048
     Dates: end: 201505
  3. FUSID [Concomitant]
     Active Substance: FUROSEMIDE
     Dosage: UNK
  4. SUTENT [Suspect]
     Active Substance: SUNITINIB MALATE
     Dosage: 37.5 MG, 1X/DAY, CYCLIC
     Route: 048
  5. ENALADEX [Concomitant]
     Active Substance: ENALAPRIL MALEATE
     Dosage: UNK
  6. NORVASC [Concomitant]
     Active Substance: AMLODIPINE BESYLATE
     Dosage: UNK
  7. AREDIA [Suspect]
     Active Substance: PAMIDRONATE DISODIUM
     Dosage: UNK

REACTIONS (37)
  - Pleural effusion [Unknown]
  - Pain in extremity [Recovering/Resolving]
  - Palmar-plantar erythrodysaesthesia syndrome [Not Recovered/Not Resolved]
  - Skin exfoliation [Recovered/Resolved]
  - Weight decreased [Recovered/Resolved]
  - Platelet count decreased [Unknown]
  - Testicular oedema [Recovered/Resolved]
  - Blood sodium decreased [Unknown]
  - Nausea [Unknown]
  - Anuria [Unknown]
  - Blood pressure increased [Not Recovered/Not Resolved]
  - Diarrhoea [Recovered/Resolved]
  - Ocular hyperaemia [Not Recovered/Not Resolved]
  - Skin haemorrhage [Recovered/Resolved]
  - Blood thyroid stimulating hormone increased [Not Recovered/Not Resolved]
  - Asthenia [Not Recovered/Not Resolved]
  - Abdominal distension [Not Recovered/Not Resolved]
  - Haemoglobin decreased [Recovering/Resolving]
  - Blood creatinine increased [Not Recovered/Not Resolved]
  - Dry mouth [Recovering/Resolving]
  - Blood test abnormal [Recovering/Resolving]
  - Influenza like illness [Recovered/Resolved]
  - Lacrimation increased [Not Recovered/Not Resolved]
  - Face oedema [Unknown]
  - Oedema peripheral [Not Recovered/Not Resolved]
  - Pyrexia [Recovered/Resolved]
  - Pain [Recovered/Resolved]
  - White blood cell count decreased [Not Recovered/Not Resolved]
  - Dyspepsia [Unknown]
  - Disease progression [Unknown]
  - Renal cell carcinoma [Unknown]
  - Dysuria [Recovering/Resolving]
  - Localised oedema [Not Recovered/Not Resolved]
  - Decreased appetite [Not Recovered/Not Resolved]
  - Blood albumin decreased [Not Recovered/Not Resolved]
  - Joint swelling [Unknown]
  - Blood potassium increased [Unknown]
